FAERS Safety Report 6755277-4 (Version None)
Quarter: 2010Q2

REPORT INFORMATION
  Report Type: 
  Country: None (occurrence: None)
  Receive Date: 20100602
  Receipt Date: 20100518
  Transmission Date: 20101027
  Serious: Yes (Life-Threatening)
  Sender: FDA-Public Use
  Company Number: 1000014183

PATIENT

DRUGS (1)
  1. DINOPROSTONE (DINOPROSTONE) [Suspect]
     Dosage: 10 MG, TRANSPLACENTAL
     Route: 064

REACTIONS (3)
  - APPARENT DEATH [None]
  - CONGENITAL BRAIN DAMAGE [None]
  - MATERNAL DRUGS AFFECTING FOETUS [None]
